FAERS Safety Report 12154026 (Version 2)
Quarter: 2016Q3

REPORT INFORMATION
  Report Type: Report from Study
  Country: TR (occurrence: TR)
  Receive Date: 20160307
  Receipt Date: 20160719
  Transmission Date: 20161109
  Serious: Yes (Other)
  Sender: FDA-Public Use
  Company Number: TR-ALKEM-001491

PATIENT
  Age: 12 Year
  Sex: Male

DRUGS (1)
  1. OLANZAPINE. [Suspect]
     Active Substance: OLANZAPINE
     Indication: PSYCHOTIC DISORDER
     Dosage: INITIALLY RECEIVED 5 MG/D, LATER INCREASING THE DOSE TO 10 MG/DAY

REACTIONS (1)
  - Spontaneous ejaculation [Recovered/Resolved]
